FAERS Safety Report 23235820 (Version 1)
Quarter: 2023Q4

REPORT INFORMATION
  Report Type: Report from Study
  Country: DE (occurrence: DE)
  Receive Date: 20231128
  Receipt Date: 20231128
  Transmission Date: 20240110
  Serious: Yes (Hospitalization)
  Sender: FDA-Public Use
  Company Number: DE-ROCHE-3405134

PATIENT
  Age: 41 Year
  Sex: Female
  Weight: 61 kg

DRUGS (14)
  1. TRASTUZUMAB [Suspect]
     Active Substance: TRASTUZUMAB
     Indication: Breast cancer
     Dosage: PER CYCLE
     Dates: start: 20230713
  2. TRASTUZUMAB [Suspect]
     Active Substance: TRASTUZUMAB
     Dosage: PER CYCLE
     Route: 065
     Dates: start: 20230802
  3. TRASTUZUMAB [Suspect]
     Active Substance: TRASTUZUMAB
     Dosage: RECEIVED LAST DOSE (357MG) OF DRUG PRIOR TO EVENT
     Dates: start: 20230912
  4. PACLITAXEL [Suspect]
     Active Substance: PACLITAXEL
     Indication: Breast cancer
     Dosage: 138 MG, WEEKLY
     Route: 065
     Dates: start: 20230713
  5. PACLITAXEL [Suspect]
     Active Substance: PACLITAXEL
     Dosage: RECEIVED LAST DOSE (132MG) OF DRUG PRIOR TO EVENT
     Dates: start: 20230912
  6. PERJETA [Suspect]
     Active Substance: PERTUZUMAB
     Indication: Breast cancer
     Dosage: FREQUENCY- PRO
     Dates: start: 20230713
  7. PERJETA [Suspect]
     Active Substance: PERTUZUMAB
     Dosage: 840 MG, FREQUENCY- PRO
     Route: 065
     Dates: start: 20230802
  8. PERJETA [Suspect]
     Active Substance: PERTUZUMAB
     Dosage: RECEIVED LAST DOSE (420MG) OF DRUG PRIOR TO EVENT
     Dates: start: 20230912
  9. CARBOPLATIN [Suspect]
     Active Substance: CARBOPLATIN
     Indication: Breast cancer
     Dosage: PER CYCLE
     Route: 065
     Dates: start: 20230713
  10. CARBOPLATIN [Suspect]
     Active Substance: CARBOPLATIN
     Dosage: RECEIVED LAST DOSE (580MG) OF DRUG PRIOR TO EVENT
     Dates: start: 20230912
  11. LOPERAMIDE [Concomitant]
     Active Substance: LOPERAMIDE
     Dosage: UNK
     Dates: start: 20230720
  12. ZOFRAN [Concomitant]
     Active Substance: ONDANSETRON HYDROCHLORIDE
     Dosage: UNK
     Dates: start: 202307
  13. MCP [Concomitant]
     Active Substance: METOCLOPRAMIDE HYDROCHLORIDE
     Dosage: UNK
     Dates: start: 20230722
  14. CLOTRIMAZOLE [Concomitant]
     Active Substance: CLOTRIMAZOLE
     Dosage: UNK
     Dates: start: 20230808

REACTIONS (4)
  - General physical health deterioration [Recovered/Resolved]
  - Diarrhoea [Recovering/Resolving]
  - Mucosal inflammation [Not Recovered/Not Resolved]
  - Stomatitis [Recovering/Resolving]

NARRATIVE: CASE EVENT DATE: 20230801
